FAERS Safety Report 11569660 (Version 2)
Quarter: 2016Q1

REPORT INFORMATION
  Report Type: Spontaneous
  Country: US (occurrence: US)
  Receive Date: 20150929
  Receipt Date: 20160324
  Transmission Date: 20160525
  Serious: No
  Sender: FDA-Public Use
  Company Number: US-SHIONOGI, INC-2015000681

PATIENT
  Age: 59 Year
  Sex: Female

DRUGS (6)
  1. DOXYCYCLINE. [Concomitant]
     Active Substance: DOXYCYCLINE
     Indication: ACNE
     Dosage: UNK
     Route: 065
     Dates: start: 2012
  2. LORAZEPAM. [Concomitant]
     Active Substance: LORAZEPAM
     Indication: SLEEP DISORDER
  3. OSPHENA [Suspect]
     Active Substance: OSPEMIFENE
     Dosage: 1/2 OSPHENA TABLET
     Route: 065
     Dates: start: 201506, end: 201507
  4. OSPHENA [Suspect]
     Active Substance: OSPEMIFENE
     Dosage: 60 MG, QD
     Route: 065
     Dates: start: 20150701
  5. OSPHENA [Suspect]
     Active Substance: OSPEMIFENE
     Indication: DYSPAREUNIA
     Dosage: 60 MG, QD
     Route: 048
     Dates: start: 20150606, end: 201506
  6. LORAZEPAM. [Concomitant]
     Active Substance: LORAZEPAM
     Indication: ANXIETY
     Dosage: UNK, PRN
     Route: 065
     Dates: start: 2013

REACTIONS (11)
  - Vulvovaginal pain [Not Recovered/Not Resolved]
  - Drug dose omission [Unknown]
  - Hyperaesthesia [Not Recovered/Not Resolved]
  - Acne [Not Recovered/Not Resolved]
  - Erythema [Not Recovered/Not Resolved]
  - Skin irritation [Not Recovered/Not Resolved]
  - Headache [Recovered/Resolved]
  - Abdominal discomfort [Recovered/Resolved]
  - Prescribed underdose [Unknown]
  - Rosacea [Not Recovered/Not Resolved]
  - Alopecia [Not Recovered/Not Resolved]

NARRATIVE: CASE EVENT DATE: 2015
